FAERS Safety Report 9917242 (Version 2)
Quarter: 2014Q1

REPORT INFORMATION
  Report Type: Spontaneous
  Country: DE (occurrence: DE)
  Receive Date: 20140221
  Receipt Date: 20140311
  Transmission Date: 20141002
  Serious: Yes (Life-Threatening)
  Sender: FDA-Public Use
  Company Number: DE-BAYER-2014-023316

PATIENT
  Sex: Female

DRUGS (1)
  1. ULTRAGRAF [Suspect]

REACTIONS (2)
  - Rash [None]
  - Vomiting [None]
